FAERS Safety Report 25505996 (Version 1)
Quarter: 2025Q3

REPORT INFORMATION
  Report Type: Spontaneous
  Country: US (occurrence: US)
  Receive Date: 20250702
  Receipt Date: 20250702
  Transmission Date: 20251021
  Serious: Yes (Hospitalization)
  Sender: AMGEN
  Company Number: US-AMGEN-USASP2025126604

PATIENT
  Age: 53 Year
  Sex: Male

DRUGS (2)
  1. CINACALCET HYDROCHLORIDE [Suspect]
     Active Substance: CINACALCET HYDROCHLORIDE
     Indication: Hyperparathyroidism primary
     Dosage: 30 MILLIGRAM, QD
     Route: 065
  2. CINACALCET HYDROCHLORIDE [Suspect]
     Active Substance: CINACALCET HYDROCHLORIDE

REACTIONS (9)
  - Dysphagia [Unknown]
  - Malnutrition [Unknown]
  - Hypomagnesaemia [Unknown]
  - Hypophosphataemia [Unknown]
  - Wrong technique in product usage process [Unknown]
  - Intentional product use issue [Unknown]
  - Cough [Unknown]
  - Hypercalcaemia [Unknown]
  - Blood parathyroid hormone increased [Unknown]
